FAERS Safety Report 12626785 (Version 1)
Quarter: 2016Q3

REPORT INFORMATION
  Report Type: Spontaneous
  Country: IT (occurrence: IT)
  Receive Date: 20160805
  Receipt Date: 20160805
  Transmission Date: 20161109
  Serious: Yes (Other)
  Sender: FDA-Public Use
  Company Number: IT-PFIZER INC-3007995

PATIENT
  Age: 64 Year
  Sex: Male

DRUGS (3)
  1. VANCOMICINA HIKMA [Suspect]
     Active Substance: VANCOMYCIN HYDROCHLORIDE
     Indication: BRAIN ABSCESS
     Dosage: 2000 MG, DAILY
     Route: 042
     Dates: start: 20150729
  2. MEROPENEM. [Suspect]
     Active Substance: MEROPENEM
     Indication: BRAIN ABSCESS
     Dosage: 6 G, DAILY
     Route: 042
     Dates: start: 20150729, end: 20150907
  3. METRONIDAZOLO KABI [Suspect]
     Active Substance: METRONIDAZOLE
     Indication: BRAIN ABSCESS
     Dosage: 1500 MG, DAILY
     Route: 042
     Dates: start: 20150729, end: 20150805

REACTIONS (2)
  - Hyperamylasaemia [Recovering/Resolving]
  - Hyperlipasaemia [Recovering/Resolving]

NARRATIVE: CASE EVENT DATE: 20150803
